FAERS Safety Report 7555768-2 (Version None)
Quarter: 2011Q2

REPORT INFORMATION
  Report Type: 
  Country: None (occurrence: None)
  Receive Date: 20110618
  Receipt Date: 20110107
  Transmission Date: 20111010
  Serious: Yes (Hospitalization)
  Sender: FDA-Public Use
  Company Number: US-BAYER-201032411NA

PATIENT
  Age: 48 Year
  Sex: Female
  Weight: 83.9 kg

DRUGS (5)
  1. MIGRAINE MEDICATIONS [Concomitant]
  2. NAPROXEN [Concomitant]
  3. MOTRIN [Concomitant]
  4. IBUPROFEN (ADVIL) [Concomitant]
  5. YASMIN [Suspect]
     Dosage: UNK UNK, UNK
     Route: 048
     Dates: start: 20040101, end: 20050101

REACTIONS (2)
  - ABDOMINAL PAIN UPPER [None]
  - MESENTERIC VEIN THROMBOSIS [None]
